FAERS Safety Report 9424725 (Version 1)
Quarter: 2013Q3

REPORT INFORMATION
  Report Type: Spontaneous
  Country: FR (occurrence: FR)
  Receive Date: 20130729
  Receipt Date: 20130729
  Transmission Date: 20140515
  Serious: Yes (Other)
  Sender: FDA-Public Use
  Company Number: FR-ELI_LILLY_AND_COMPANY-FR201307006814

PATIENT
  Age: 42 Year
  Sex: Female

DRUGS (3)
  1. ZYPREXA [Suspect]
     Dosage: 5 MG, QD
     Route: 048
  2. SEROPLEX [Interacting]
     Dosage: 10 MG, QD
     Route: 048
     Dates: start: 20120103
  3. ALPRAZOLAM [Concomitant]
     Dosage: 2 DF, QD
     Route: 065

REACTIONS (2)
  - Haemorrhage [Unknown]
  - Labelled drug-drug interaction medication error [Unknown]
